FAERS Safety Report 5503895-3 (Version None)
Quarter: 2007Q4

REPORT INFORMATION
  Report Type: 
  Country: None (occurrence: None)
  Receive Date: 20071101
  Receipt Date: 20071031
  Transmission Date: 20080405
  Serious: Yes (Death)
  Sender: FDA-Public Use
  Company Number: NZ-ELI_LILLY_AND_COMPANY-NZ200608006728

PATIENT
  Age: 58 Year
  Sex: Female

DRUGS (2)
  1. ZYPREXA [Suspect]
     Indication: DEPRESSION
     Dosage: 10 MG, DAILY (1/D)
     Route: 065
  2. NORTRIPTYLINE HCL [Concomitant]
     Dosage: 150 MG, UNK
     Route: 065

REACTIONS (3)
  - OEDEMA PERIPHERAL [None]
  - OVERWEIGHT [None]
  - PULMONARY EMBOLISM [None]
